FAERS Safety Report 25823497 (Version 1)
Quarter: 2025Q3

REPORT INFORMATION
  Report Type: Spontaneous
  Country: US (occurrence: US)
  Receive Date: 20250919
  Receipt Date: 20250919
  Transmission Date: 20251021
  Serious: No
  Sender: ELI LILLY AND COMPANY
  Company Number: US-ELI_LILLY_AND_COMPANY-US202509014227

PATIENT
  Age: 62 Year
  Sex: Male

DRUGS (9)
  1. BASAGLAR [Suspect]
     Active Substance: INSULIN GLARGINE
     Indication: Diabetes mellitus
     Dosage: UNK UNK, BID
     Route: 065
  2. BASAGLAR [Suspect]
     Active Substance: INSULIN GLARGINE
     Indication: Diabetes mellitus
     Dosage: UNK UNK, BID
     Route: 065
  3. BASAGLAR [Suspect]
     Active Substance: INSULIN GLARGINE
     Dosage: UNK UNK, BID
     Route: 065
  4. BASAGLAR [Suspect]
     Active Substance: INSULIN GLARGINE
     Dosage: UNK UNK, BID
     Route: 065
  5. BASAGLAR [Suspect]
     Active Substance: INSULIN GLARGINE
     Dosage: UNK UNK, BID
     Route: 065
  6. BASAGLAR [Suspect]
     Active Substance: INSULIN GLARGINE
     Route: 065
  7. BASAGLAR [Suspect]
     Active Substance: INSULIN GLARGINE
     Route: 065
  8. HUMALOG [Concomitant]
     Active Substance: INSULIN LISPRO
     Indication: Diabetes mellitus
  9. MOUNJARO [Concomitant]
     Active Substance: TIRZEPATIDE
     Indication: Diabetes mellitus

REACTIONS (2)
  - Illness [Unknown]
  - Inappropriate schedule of product administration [Unknown]
